FAERS Safety Report 4632758-0 (Version None)
Quarter: 2005Q2

REPORT INFORMATION
  Report Type: 
  Country: None (occurrence: None)
  Receive Date: 20050408
  Receipt Date: 20050408
  Transmission Date: 20051028
  Serious: Yes (Other)
  Sender: FDA-Public Use
  Company Number: None

PATIENT
  Age: 39 Year
  Sex: Male
  Weight: 63.5036 kg

DRUGS (1)
  1. BEXTRA [Suspect]
     Indication: BACK PAIN
     Dosage: 1 TABLET DAILY ORAL
     Route: 048
     Dates: start: 20040201, end: 20040214

REACTIONS (2)
  - PAIN OF SKIN [None]
  - RASH [None]
